FAERS Safety Report 15366702 (Version 2)
Quarter: 2018Q3

REPORT INFORMATION
  Report Type: Spontaneous
  Country: TW (occurrence: TW)
  Receive Date: 20180910
  Receipt Date: 20180918
  Transmission Date: 20181010
  Serious: Yes (Hospitalization, Other)
  Sender: FDA-Public Use
  Company Number: TW-ALEXION-A201811570

PATIENT
  Age: 85 Year
  Sex: Male

DRUGS (1)
  1. SOLIRIS [Suspect]
     Active Substance: ECULIZUMAB
     Indication: PAROXYSMAL NOCTURNAL HAEMOGLOBINURIA
     Dosage: UNK
     Route: 065

REACTIONS (6)
  - Haemoglobin decreased [Unknown]
  - Nasopharyngitis [Recovering/Resolving]
  - Cholelithiasis [Not Recovered/Not Resolved]
  - Blood pressure decreased [Unknown]
  - Abdominal pain [Not Recovered/Not Resolved]
  - Pyrexia [Not Recovered/Not Resolved]

NARRATIVE: CASE EVENT DATE: 20180911
